FAERS Safety Report 5615901-6 (Version None)
Quarter: 2008Q1

REPORT INFORMATION
  Report Type: 
  Country: None (occurrence: None)
  Receive Date: 20080114
  Receipt Date: 20071114
  Transmission Date: 20080703
  Serious: Yes (Other)
  Sender: FDA-Public Use
  Company Number: A03200706624

PATIENT
  Age: 67 Year
  Sex: Female
  Weight: 117.91 kg

DRUGS (17)
  1. PLAVIX [Suspect]
     Indication: CAROTID ARTERY OCCLUSION
     Dosage: 75 MG QD - ORAL
     Route: 048
     Dates: start: 20030101, end: 20050101
  2. PLAVIX [Suspect]
     Indication: CATHETERISATION CARDIAC
     Dosage: 75 MG QD - ORAL
     Route: 048
     Dates: start: 20030101, end: 20050101
  3. PLAVIX [Suspect]
     Indication: CAROTID ARTERY OCCLUSION
     Dosage: 75 MG QD - ORAL
     Route: 048
     Dates: start: 20050101
  4. PLAVIX [Suspect]
     Indication: CATHETERISATION CARDIAC
     Dosage: 75 MG QD - ORAL
     Route: 048
     Dates: start: 20050101
  5. DILTIAZEM [Concomitant]
  6. FUROSEMIDE [Concomitant]
  7. POTASSIUM CHLORIDE [Concomitant]
  8. AMITRIPTYLINE HCL [Concomitant]
  9. HYDROCODONE BITARTRATE [Concomitant]
  10. METOCLOPRAMIDE [Concomitant]
  11. ALBUTEROL [Concomitant]
  12. FLUTICASONE [Concomitant]
  13. LISINOPRIL AND HYDROCHLOROTHIAZIDE [Concomitant]
  14. LISINOPRIL [Concomitant]
  15. BETHANECHOL [Concomitant]
  16. GUAIFENESIN [Concomitant]
  17. INSULIN [Concomitant]

REACTIONS (8)
  - ANGINA PECTORIS [None]
  - FALL [None]
  - HEADACHE [None]
  - HYPOAESTHESIA FACIAL [None]
  - JOINT DISLOCATION [None]
  - MYOCARDIAL INFARCTION [None]
  - NERVE INJURY [None]
  - WRIST FRACTURE [None]
